FAERS Safety Report 20438955 (Version 4)
Quarter: 2022Q3

REPORT INFORMATION
  Report Type: Spontaneous
  Country: US (occurrence: US)
  Receive Date: 20220207
  Receipt Date: 20220715
  Transmission Date: 20221027
  Serious: Yes (Hospitalization)
  Sender: FDA-Public Use
  Company Number: US-PFIZER INC-202101558521

PATIENT
  Age: 74 Year
  Sex: Female

DRUGS (2)
  1. IBRANCE [Suspect]
     Active Substance: PALBOCICLIB
     Indication: Breast cancer female
     Dosage: 100 MG
  2. IBRANCE [Suspect]
     Active Substance: PALBOCICLIB
     Dosage: 75 MG

REACTIONS (15)
  - Illness [Unknown]
  - Tearfulness [Unknown]
  - Malaise [Unknown]
  - Frustration tolerance decreased [Unknown]
  - Bronchitis [Unknown]
  - Illness [Unknown]
  - Speech disorder [Unknown]
  - COVID-19 [Recovered/Resolved]
  - Depressed mood [Unknown]
  - Weight decreased [Not Recovered/Not Resolved]
  - Decreased appetite [Unknown]
  - Fatigue [Unknown]
  - White blood cell count abnormal [Unknown]
  - Vomiting [Unknown]
  - Pyrexia [Unknown]
